FAERS Safety Report 5884219-9 (Version None)
Quarter: 2008Q3

REPORT INFORMATION
  Report Type: 
  Country: None (occurrence: None)
  Receive Date: 20080911
  Receipt Date: 20080829
  Transmission Date: 20090109
  Serious: Yes (Other)
  Sender: FDA-Public Use
  Company Number: 2008SP015323

PATIENT
  Age: 54 Year
  Sex: Female

DRUGS (5)
  1. MIRALAX [Suspect]
     Indication: CONSTIPATION
     Dosage: QD; PO, PO
     Route: 048
     Dates: start: 20080515
  2. MIRALAX [Suspect]
     Indication: OFF LABEL USE
     Dosage: QD; PO, PO
     Route: 048
     Dates: start: 20080515
  3. MIRALAX [Suspect]
     Indication: CONSTIPATION
     Dosage: QD; PO, PO
     Route: 048
     Dates: start: 20080724
  4. MIRALAX [Suspect]
     Indication: OFF LABEL USE
     Dosage: QD; PO, PO
     Route: 048
     Dates: start: 20080724
  5. LISINOPRIL [Concomitant]

REACTIONS (3)
  - CONSTIPATION [None]
  - LIP BLISTER [None]
  - LIP EXFOLIATION [None]
